FAERS Safety Report 7112314-5 (Version None)
Quarter: 2010Q4

REPORT INFORMATION
  Report Type: 
  Country: None (occurrence: None)
  Receive Date: 20101119
  Receipt Date: 20100707
  Transmission Date: 20110411
  Serious: No
  Sender: FDA-Public Use
  Company Number: A0868940A

PATIENT
  Age: 73 Year
  Sex: Male

DRUGS (5)
  1. AVODART [Suspect]
     Indication: BENIGN PROSTATIC HYPERPLASIA
     Dosage: .5MG IN THE MORNING
     Route: 048
  2. FISH OIL [Concomitant]
  3. CRESTOR [Concomitant]
  4. LUTEIN [Concomitant]
  5. CIPROFLOXACIN [Concomitant]

REACTIONS (2)
  - BREAST ENLARGEMENT [None]
  - HAEMATOSPERMIA [None]
